FAERS Safety Report 12982936 (Version 1)
Quarter: 2016Q4

REPORT INFORMATION
  Report Type: Spontaneous
  Country: US (occurrence: US)
  Receive Date: 20161129
  Receipt Date: 20161129
  Transmission Date: 20170207
  Serious: No
  Sender: FDA-Public Use
  Company Number: US-MALLINCKRODT-T201505668

PATIENT
  Age: 61 Year
  Sex: Female
  Weight: 93 kg

DRUGS (3)
  1. CLONAZEPAM. [Concomitant]
     Active Substance: CLONAZEPAM
     Dosage: 1 MG, QID
  2. FENTANYL TRANSDERMAL SYSTEM [Suspect]
     Active Substance: FENTANYL
     Indication: BACK PAIN
     Dosage: 25 MCG/HR EVERY 72 HOURS
     Route: 062
     Dates: start: 201509
  3. OXYCODONE [Concomitant]
     Active Substance: OXYCODONE
     Dosage: 7.5 MG, QID

REACTIONS (5)
  - Temperature regulation disorder [Not Recovered/Not Resolved]
  - Constipation [Not Recovered/Not Resolved]
  - Melaena [Not Recovered/Not Resolved]
  - Overdose [Not Recovered/Not Resolved]
  - Drug effect increased [Not Recovered/Not Resolved]

NARRATIVE: CASE EVENT DATE: 20151128
